FAERS Safety Report 6577037-X (Version None)
Quarter: 2010Q1

REPORT INFORMATION
  Report Type: 
  Country: None (occurrence: None)
  Receive Date: 20100210
  Receipt Date: 20100201
  Transmission Date: 20100710
  Serious: Yes (Hospitalization)
  Sender: FDA-Public Use
  Company Number: FR-BRISTOL-MYERS SQUIBB COMPANY-14688816

PATIENT
  Age: 74 Year
  Sex: Female

DRUGS (1)
  1. SPRYCEL [Suspect]
     Indication: CHRONIC MYELOID LEUKAEMIA
     Dosage: INITIALLY 100 MG/D;DECREASED TO 6 MG/D END OF APR09;I RECEIVED IN 2006-STOPPED DUE TO SAME EVENT
     Dates: start: 20070101, end: 20090530

REACTIONS (3)
  - DYSPHAGIA [None]
  - GUILLAIN-BARRE SYNDROME [None]
  - VITAL CAPACITY DECREASED [None]
